FAERS Safety Report 22322584 (Version 1)
Quarter: 2023Q2

REPORT INFORMATION
  Report Type: Spontaneous
  Country: US (occurrence: US)
  Receive Date: 20230516
  Receipt Date: 20230516
  Transmission Date: 20230722
  Serious: No
  Sender: FDA-Public Use
  Company Number: US-Axsome Therapeutics, Inc.-AXS202211-003433

PATIENT
  Age: 39 Year
  Sex: Female
  Weight: 60.3 kg

DRUGS (3)
  1. SUNOSI [Suspect]
     Active Substance: SOLRIAMFETOL
     Indication: Hypersomnia
     Dosage: TAKE 1 TABLET BY MOUTH DAILY. MAY INCREASED TO 2 TABLETS (150 MG) AFTER 3 DAYS IF HEEDED
     Route: 048
     Dates: start: 20210923, end: 20211115
  2. SUNOSI [Suspect]
     Active Substance: SOLRIAMFETOL
     Indication: Obstructive sleep apnoea syndrome
  3. ZOLPIDEM [Concomitant]
     Active Substance: ZOLPIDEM TARTRATE
     Indication: Sleep disorder
     Dosage: TAKE 1 TABLET BY MOUTH DAILY AT BEDTIME AS NEEDED (SLEEP).
     Route: 048
     Dates: start: 20211012, end: 20211216

REACTIONS (3)
  - Apathy [Unknown]
  - Drug ineffective for unapproved indication [Unknown]
  - Off label use [Unknown]
